FAERS Safety Report 10220175 (Version 1)
Quarter: 2014Q2

REPORT INFORMATION
  Report Type: Report from Study
  Country: AR (occurrence: AR)
  Receive Date: 20140605
  Receipt Date: 20140605
  Transmission Date: 20141212
  Serious: Yes (Other)
  Sender: FDA-Public Use
  Company Number: PHHY2014AR068494

PATIENT
  Sex: Female

DRUGS (1)
  1. RASILEZ [Suspect]
     Indication: HYPERTENSION
     Dosage: 1 TABLET (300 MG), DAILY
     Route: 048

REACTIONS (5)
  - Blindness unilateral [Unknown]
  - Eye haemorrhage [Unknown]
  - Intraocular pressure increased [Unknown]
  - Eye pain [Unknown]
  - Peripheral vascular disorder [Unknown]
